FAERS Safety Report 8936582 (Version 1)
Quarter: 2012Q4

REPORT INFORMATION
  Report Type: Report from Study
  Country: PH (occurrence: PH)
  Receive Date: 20121130
  Receipt Date: 20121130
  Transmission Date: 20130627
  Serious: Yes (Hospitalization, Other)
  Sender: FDA-Public Use
  Company Number: PH-GLAXOSMITHKLINE-A0896321A

PATIENT
  Age: 22 Year
  Sex: Male
  Weight: 57 kg

DRUGS (4)
  1. BELIMUMAB [Suspect]
     Indication: SYSTEMIC LUPUS ERYTHEMATOSUS
     Dosage: 10MGK Every 28 days
     Route: 042
     Dates: start: 20080118, end: 20100415
  2. PREDNISONE [Suspect]
     Indication: SYSTEMIC LUPUS ERYTHEMATOSUS
     Dosage: 2.5MG Three times per week
     Route: 048
     Dates: start: 20100215
  3. METOPROLOL [Concomitant]
     Indication: HYPERTENSION
     Dosage: 50MG Per day
     Dates: start: 20090707
  4. LOSARTAN [Concomitant]
     Indication: HYPERTENSION
     Dosage: 50MG Per day
     Dates: start: 20080703

REACTIONS (2)
  - Pleural effusion [Recovered/Resolved]
  - Lupus nephritis [Recovered/Resolved with Sequelae]
